FAERS Safety Report 10954340 (Version 2)
Quarter: 2015Q2

REPORT INFORMATION
  Report Type: Report from Study
  Country: FR (occurrence: FR)
  Receive Date: 20150325
  Receipt Date: 20150514
  Transmission Date: 20150821
  Serious: Yes (Other)
  Sender: FDA-Public Use
  Company Number: FR-RB PHARMACEUTICALS LIMITED-RB-077369-2015

PATIENT
  Age: 54 Year
  Sex: Male

DRUGS (1)
  1. SUBUTEX [Suspect]
     Active Substance: BUPRENORPHINE HYDROCHLORIDE
     Indication: DRUG DEPENDENCE
     Dosage: UNK
     Route: 065

REACTIONS (7)
  - Intentional underdose [Unknown]
  - Hyperhidrosis [Unknown]
  - Hallucination [Unknown]
  - Diarrhoea [Unknown]
  - Drug dependence [Unknown]
  - Substance abuse [Unknown]
  - Gastrointestinal disorder [Unknown]
